FAERS Safety Report 13411257 (Version 3)
Quarter: 2019Q3

REPORT INFORMATION
  Report Type: Spontaneous
  Country: US (occurrence: US)
  Receive Date: 20170406
  Receipt Date: 20190822
  Transmission Date: 20191004
  Serious: No
  Sender: FDA-Public Use
  Company Number: US-JNJFOC-20170306940

PATIENT
  Age: 14 Year
  Sex: Male

DRUGS (5)
  1. RISPERIDONE. [Suspect]
     Active Substance: RISPERIDONE
     Indication: PERSONALITY DISORDER
     Route: 048
     Dates: start: 20080912, end: 20090310
  2. RISPERIDONE. [Suspect]
     Active Substance: RISPERIDONE
     Indication: OPPOSITIONAL DEFIANT DISORDER
  3. RISPERIDONE. [Suspect]
     Active Substance: RISPERIDONE
     Indication: BIPOLAR DISORDER
     Route: 048
     Dates: start: 20080108
  4. RISPERDAL [Suspect]
     Active Substance: RISPERIDONE
     Indication: BIPOLAR DISORDER
     Dosage: VARYING DOSE OF 0.5MG AND 1 MG
     Route: 048
     Dates: start: 20080102, end: 20080717
  5. RISPERDAL [Suspect]
     Active Substance: RISPERIDONE
     Indication: PERSONALITY DISORDER
     Route: 048
     Dates: end: 20090310

REACTIONS (5)
  - Blood prolactin increased [Unknown]
  - Emotional distress [Unknown]
  - Gynaecomastia [Unknown]
  - Anxiety [Unknown]
  - Treatment noncompliance [Unknown]

NARRATIVE: CASE EVENT DATE: 20080222
